FAERS Safety Report 9468794 (Version 3)
Quarter: 2013Q3

REPORT INFORMATION
  Report Type: Report from Study
  Country: FR (occurrence: FR)
  Receive Date: 20130821
  Receipt Date: 20130906
  Transmission Date: 20140515
  Serious: Yes (Hospitalization)
  Sender: FDA-Public Use
  Company Number: FR-ROCHE-1259593

PATIENT
  Age: 65 Year
  Sex: Female
  Weight: 67 kg

DRUGS (10)
  1. PERTUZUMAB [Suspect]
     Indication: HER-2 POSITIVE BREAST CANCER
     Dosage: LOADING DOSE
     Route: 042
     Dates: start: 20130716
  2. TRASTUZUMAB [Suspect]
     Indication: HER-2 POSITIVE BREAST CANCER
     Dosage: LOADING DOSE
     Route: 042
     Dates: start: 20130717
  3. VINORELBINE [Suspect]
     Indication: HER-2 POSITIVE BREAST CANCER
     Dosage: MOST RECENT DOSE PRIOR TO SAE:  24/JUL/2013
     Route: 042
     Dates: start: 20130717
  4. CONTRAMAL [Concomitant]
     Route: 065
     Dates: start: 20130703
  5. ALPRAZOLAM [Concomitant]
     Route: 065
     Dates: start: 20130703
  6. ZYLORIC [Concomitant]
     Route: 065
     Dates: start: 20130704
  7. LEVOTHYROX [Concomitant]
     Route: 065
     Dates: start: 2003
  8. LODOZ [Concomitant]
     Route: 065
     Dates: start: 2003
  9. TIORFAN [Concomitant]
     Route: 065
     Dates: start: 20130717
  10. IMOVANE [Concomitant]
     Route: 065
     Dates: start: 20130717

REACTIONS (1)
  - Hypokalaemia [Recovered/Resolved]
